FAERS Safety Report 6161006-8 (Version None)
Quarter: 2009Q2

REPORT INFORMATION
  Report Type: 
  Country: None (occurrence: None)
  Receive Date: 20090420
  Receipt Date: 20090405
  Transmission Date: 20091009
  Serious: Yes (Other)
  Sender: FDA-Public Use
  Company Number: US-JNJCH-2009009873

PATIENT
  Sex: Male
  Weight: 61.22 kg

DRUGS (9)
  1. NICOTINE (UNSPECIFIED) [Suspect]
     Indication: DRUG USE FOR UNKNOWN INDICATION
     Dosage: TEXT:UNKNOWN
     Route: 065
  2. CHANTIX [Suspect]
     Indication: SMOKING CESSATION THERAPY
     Dosage: TEXT:0.5 MG, 1X/DAY
     Route: 048
     Dates: start: 20090317
  3. SEROQUEL [Concomitant]
     Indication: DRUG USE FOR UNKNOWN INDICATION
     Dosage: TEXT:UNSPECIFIED
     Route: 065
  4. KLONOPIN [Concomitant]
     Indication: DRUG USE FOR UNKNOWN INDICATION
     Dosage: TEXT:UNSPECIFIED
     Route: 065
  5. EFFEXOR [Concomitant]
     Indication: DRUG USE FOR UNKNOWN INDICATION
     Dosage: TEXT:UNSPECIFIED
     Route: 065
  6. TRUVADA [Concomitant]
     Indication: HIV INFECTION
     Dosage: TEXT:UNSPECIFIED
     Route: 065
  7. VIRAMUNE [Concomitant]
     Indication: DRUG USE FOR UNKNOWN INDICATION
     Dosage: TEXT:UNSPECIFIED
     Route: 065
  8. ZANAFLEX [Concomitant]
     Indication: DRUG USE FOR UNKNOWN INDICATION
     Dosage: TEXT:UNSPECIFIED
     Route: 065
  9. MIRTAZAPINE [Concomitant]
     Indication: DRUG USE FOR UNKNOWN INDICATION
     Dosage: TEXT:UNSPECIFIED
     Route: 065

REACTIONS (16)
  - AGITATION [None]
  - ANGER [None]
  - ANXIETY [None]
  - CONSTIPATION [None]
  - COUGH [None]
  - DEPRESSED MOOD [None]
  - DRUG INEFFECTIVE [None]
  - DYSGEUSIA [None]
  - FATIGUE [None]
  - FLATULENCE [None]
  - GLOSSODYNIA [None]
  - HYPERSENSITIVITY [None]
  - MENTAL DISORDER [None]
  - SOMNOLENCE [None]
  - STRESS [None]
  - WEIGHT INCREASED [None]
